FAERS Safety Report 8127826-5 (Version None)
Quarter: 2012Q1

REPORT INFORMATION
  Report Type: 
  Country: None (occurrence: None)
  Receive Date: 20120210
  Receipt Date: 20110705
  Transmission Date: 20120608
  Serious: No
  Sender: FDA-Public Use
  Company Number: US-GLAXOSMITHKLINE-A0936200A

PATIENT
  Age: 61 Year
  Sex: Female

DRUGS (1)
  1. PAXIL [Suspect]
     Indication: HOT FLUSH
     Dosage: 10MG PER DAY
     Route: 048
     Dates: start: 20110215

REACTIONS (5)
  - RHINITIS [None]
  - RHINORRHOEA [None]
  - SNEEZING [None]
  - COUGH [None]
  - SECRETION DISCHARGE [None]
